FAERS Safety Report 10544983 (Version 2)
Quarter: 2014Q4

REPORT INFORMATION
  Report Type: Report from Study
  Country: US (occurrence: US)
  Receive Date: 20141027
  Receipt Date: 20141027
  Transmission Date: 20150529
  Serious: Yes (Other)
  Sender: FDA-Public Use
  Company Number: US-ACTELION-A-NJ2014-96471

PATIENT
  Age: 74 Year
  Sex: Male

DRUGS (8)
  1. OPSUMIT [Suspect]
     Active Substance: MACITENTAN
     Indication: PULMONARY ARTERIAL HYPERTENSION
     Dosage: 10 MG, QD
     Route: 048
     Dates: start: 20140114
  2. OPSUMIT [Suspect]
     Active Substance: MACITENTAN
     Dosage: 10 UNK, UNK
     Route: 048
  3. VENTAVIS [Suspect]
     Active Substance: ILOPROST
     Indication: PULMONARY ARTERIAL HYPERTENSION
     Dosage: 5.0 MCG, 6-9XDAILY
     Route: 055
  4. LASIX [Concomitant]
     Active Substance: FUROSEMIDE
     Dosage: 40 MG, QD
     Route: 048
  5. VENTAVIS [Suspect]
     Active Substance: ILOPROST
     Dosage: 5.0 MCG, 6-9XDAILY
     Route: 055
  6. SYMBICORT [Concomitant]
     Active Substance: BUDESONIDE\FORMOTEROL FUMARATE DIHYDRATE
     Dosage: 2 PUFFS QD
  7. VENTAVIS [Suspect]
     Active Substance: ILOPROST
     Dosage: 2.5 MCG, UNK
     Route: 055
     Dates: start: 20140312
  8. VENTAVIS [Suspect]
     Active Substance: ILOPROST
     Dosage: 5MCG, 5-6/DAY
     Route: 055
     Dates: start: 20140411

REACTIONS (16)
  - Angina pectoris [Unknown]
  - Headache [Unknown]
  - Musculocutaneous nerve injury [Unknown]
  - Joint dislocation [Unknown]
  - Fluid retention [Unknown]
  - Lung disorder [Unknown]
  - Malaise [Unknown]
  - Respiratory tract infection [Unknown]
  - Cough [Unknown]
  - Chest pain [Unknown]
  - Swelling [Unknown]
  - Productive cough [Unknown]
  - Chest discomfort [Recovering/Resolving]
  - Respiratory tract congestion [Unknown]
  - Dyspnoea [Unknown]
  - Oedema [Unknown]
